FAERS Safety Report 19925591 (Version 11)
Quarter: 2023Q2

REPORT INFORMATION
  Report Type: Report from Study
  Country: CN (occurrence: CN)
  Receive Date: 20211006
  Receipt Date: 20230418
  Transmission Date: 20230721
  Serious: Yes (Hospitalization)
  Sender: FDA-Public Use
  Company Number: CN-TAKEDA-2021TUS061115

PATIENT
  Age: 51 Year
  Sex: Female
  Weight: 58 kg

DRUGS (49)
  1. IXAZOMIB [Suspect]
     Active Substance: IXAZOMIB
     Indication: Hypergammaglobulinaemia benign monoclonal
     Dosage: 4 MILLIGRAM, 1/WEEK
     Route: 048
     Dates: start: 20210703
  2. IXAZOMIB [Suspect]
     Active Substance: IXAZOMIB
     Dosage: 3 MILLIGRAM, 1/WEEK
     Route: 048
     Dates: start: 20220826
  3. BORTEZOMIB [Suspect]
     Active Substance: BORTEZOMIB
     Indication: Plasma cell myeloma
     Dosage: 2 MILLIGRAM
     Route: 058
     Dates: start: 20210604, end: 20210604
  4. BORTEZOMIB [Suspect]
     Active Substance: BORTEZOMIB
     Dosage: 2 MILLIGRAM
     Route: 058
     Dates: start: 20210630, end: 20210630
  5. DEXAMETHASONE SODIUM PHOSPHATE [Suspect]
     Active Substance: DEXAMETHASONE SODIUM PHOSPHATE
     Indication: Plasma cell myeloma
     Dosage: 20 MILLIGRAM
     Route: 042
     Dates: start: 20210703, end: 20210703
  6. CYCLOPHOSPHAMIDE [Suspect]
     Active Substance: CYCLOPHOSPHAMIDE
     Indication: Hypergammaglobulinaemia benign monoclonal
     Dosage: 50 MILLIGRAM
     Route: 048
     Dates: start: 20210623, end: 20210702
  7. CYCLOPHOSPHAMIDE [Suspect]
     Active Substance: CYCLOPHOSPHAMIDE
     Indication: Plasma cell myeloma
     Dosage: 300 MILLIGRAM
     Route: 065
     Dates: start: 20210703, end: 20210703
  8. ATORVASTATIN CALCIUM [Concomitant]
     Active Substance: ATORVASTATIN CALCIUM
     Indication: Hyperlipidaemia
     Dosage: 20 MILLIGRAM, TID
     Route: 048
     Dates: start: 20210603, end: 20210604
  9. ATORVASTATIN CALCIUM [Concomitant]
     Active Substance: ATORVASTATIN CALCIUM
     Dosage: 20 MILLIGRAM
     Route: 048
     Dates: start: 20210605, end: 20210618
  10. ATORVASTATIN CALCIUM [Concomitant]
     Active Substance: ATORVASTATIN CALCIUM
     Dosage: 20 MILLIGRAM
     Route: 048
     Dates: start: 20210622, end: 20210703
  11. ATORVASTATIN CALCIUM [Concomitant]
     Active Substance: ATORVASTATIN CALCIUM
     Dosage: 20 MILLIGRAM
     Route: 048
     Dates: start: 20210704, end: 20210717
  12. ATORVASTATIN CALCIUM [Concomitant]
     Active Substance: ATORVASTATIN CALCIUM
     Dosage: 20 MILLIGRAM
     Route: 048
     Dates: start: 20210729, end: 2021
  13. BICYCLOL [Concomitant]
     Active Substance: BICYCLOL
     Indication: Prophylaxis
     Dosage: 50 MILLIGRAM, TID
     Route: 048
     Dates: start: 20210601, end: 20210604
  14. BICYCLOL [Concomitant]
     Active Substance: BICYCLOL
     Dosage: 50 MILLIGRAM, TID
     Route: 048
     Dates: start: 20210729, end: 20210922
  15. CLOSTRIDIUM BUTYRICUM SPORES STRAIN M-55 [Concomitant]
     Active Substance: CLOSTRIDIUM BUTYRICUM SPORES STRAIN M-55
     Indication: Prophylaxis
     Dosage: 40 MILLIGRAM, TID
     Route: 048
     Dates: start: 20210601, end: 20210604
  16. CLOSTRIDIUM BUTYRICUM SPORES STRAIN M-55 [Concomitant]
     Active Substance: CLOSTRIDIUM BUTYRICUM SPORES STRAIN M-55
     Dosage: 40 MILLIGRAM, TID
     Route: 048
     Dates: start: 20210623, end: 20210728
  17. CLOSTRIDIUM BUTYRICUM SPORES STRAIN M-55 [Concomitant]
     Active Substance: CLOSTRIDIUM BUTYRICUM SPORES STRAIN M-55
     Dosage: 40 MILLIGRAM, TID
     Route: 048
     Dates: start: 20210729, end: 2021
  18. ESOMEPRAZOLE SODIUM [Concomitant]
     Active Substance: ESOMEPRAZOLE SODIUM
     Indication: Prophylaxis
     Dosage: 40 MILLIGRAM
     Route: 042
     Dates: start: 20210602, end: 20210604
  19. ESOMEPRAZOLE SODIUM [Concomitant]
     Active Substance: ESOMEPRAZOLE SODIUM
     Dosage: 40 MILLIGRAM, QD
     Route: 042
     Dates: start: 20210622, end: 20210703
  20. ESOMEPRAZOLE SODIUM [Concomitant]
     Active Substance: ESOMEPRAZOLE SODIUM
     Dosage: 40 MILLIGRAM
     Route: 042
     Dates: start: 20210729, end: 20210729
  21. GLUTATHIONE [Concomitant]
     Active Substance: GLUTATHIONE
     Indication: Prophylaxis
     Dosage: 1.8 GRAM
     Route: 042
     Dates: start: 20210602, end: 20210602
  22. GLUTATHIONE [Concomitant]
     Active Substance: GLUTATHIONE
     Dosage: 1.8 GRAM, TID
     Route: 042
     Dates: start: 20210602, end: 20210604
  23. GLUTATHIONE [Concomitant]
     Active Substance: GLUTATHIONE
     Dosage: 1.8 GRAM, QD
     Route: 042
     Dates: start: 20210622, end: 20210703
  24. GLUTATHIONE [Concomitant]
     Active Substance: GLUTATHIONE
     Dosage: 1.8 GRAM
     Route: 042
     Dates: start: 20210729, end: 20210729
  25. AMMONIUM GLYCYRRHIZATE\CYSTEINE [Concomitant]
     Active Substance: AMMONIUM GLYCYRRHIZATE\CYSTEINE
     Indication: Prophylaxis
     Dosage: 250 MILLILITER, QD
     Route: 042
     Dates: start: 20210623, end: 20210703
  26. AMMONIUM GLYCYRRHIZATE\CYSTEINE [Concomitant]
     Active Substance: AMMONIUM GLYCYRRHIZATE\CYSTEINE
     Dosage: 250 MILLILITER
     Route: 042
     Dates: start: 20210623, end: 20210623
  27. AMMONIUM GLYCYRRHIZATE\CYSTEINE [Concomitant]
     Active Substance: AMMONIUM GLYCYRRHIZATE\CYSTEINE
     Dosage: 250 MILLILITER
     Route: 042
     Dates: start: 20210729, end: 20210729
  28. ONDANSETRON HYDROCHLORIDE [Concomitant]
     Active Substance: ONDANSETRON HYDROCHLORIDE
     Indication: Prophylaxis
     Dosage: 8 MILLIGRAM
     Route: 042
     Dates: start: 20210604, end: 20210604
  29. ONDANSETRON HYDROCHLORIDE [Concomitant]
     Active Substance: ONDANSETRON HYDROCHLORIDE
     Dosage: 8 MILLIGRAM
     Route: 042
     Dates: start: 20210626, end: 20210626
  30. ONDANSETRON HYDROCHLORIDE [Concomitant]
     Active Substance: ONDANSETRON HYDROCHLORIDE
     Dosage: 8 MILLIGRAM
     Route: 042
     Dates: start: 20210630, end: 20210630
  31. ONDANSETRON HYDROCHLORIDE [Concomitant]
     Active Substance: ONDANSETRON HYDROCHLORIDE
     Dosage: 8 MILLIGRAM
     Route: 042
     Dates: start: 20210703, end: 20210703
  32. ADENOSINE CYCLIC PHOSPHATE MEGLUMINE [Concomitant]
     Active Substance: ADENOSINE CYCLIC PHOSPHATE MEGLUMINE
     Indication: Cardiac disorder
     Dosage: 120 MILLIGRAM
     Route: 042
     Dates: start: 20210701, end: 20210701
  33. ADENOSINE CYCLIC PHOSPHATE MEGLUMINE [Concomitant]
     Active Substance: ADENOSINE CYCLIC PHOSPHATE MEGLUMINE
     Dosage: 120 MILLIGRAM, QD
     Route: 042
     Dates: start: 20210701, end: 20210703
  34. LOPERAMIDE HYDROCHLORIDE [Concomitant]
     Active Substance: LOPERAMIDE HYDROCHLORIDE
     Indication: Prophylaxis against diarrhoea
     Dosage: 12 MILLIGRAM
     Route: 048
     Dates: start: 20210703, end: 20210704
  35. LOPERAMIDE HYDROCHLORIDE [Concomitant]
     Active Substance: LOPERAMIDE HYDROCHLORIDE
     Dosage: 12 MILLIGRAM
     Route: 048
     Dates: start: 20210704, end: 20210704
  36. OMEPRAZOLE [Concomitant]
     Active Substance: OMEPRAZOLE
     Indication: Prophylaxis
     Dosage: 20 MILLIGRAM, QD
     Route: 048
     Dates: start: 20210603, end: 20210703
  37. OMEPRAZOLE [Concomitant]
     Active Substance: OMEPRAZOLE
     Dosage: 20 MILLIGRAM, QD
     Route: 048
     Dates: start: 20210704, end: 20210717
  38. MONTMORILLONITE [Concomitant]
     Active Substance: MONTMORILLONITE
     Indication: Prophylaxis against diarrhoea
     Dosage: 3 GRAM, TID
     Route: 048
     Dates: start: 20210704, end: 20210717
  39. SODIUM BICARBONATE [Concomitant]
     Active Substance: SODIUM BICARBONATE
     Indication: Blood alkalinisation therapy
     Dosage: 1 GRAM
     Route: 048
     Dates: start: 20210602, end: 20210602
  40. SODIUM BICARBONATE [Concomitant]
     Active Substance: SODIUM BICARBONATE
     Dosage: 1 GRAM, TID
     Route: 048
     Dates: start: 20210602, end: 20210604
  41. SODIUM BICARBONATE [Concomitant]
     Active Substance: SODIUM BICARBONATE
     Dosage: 1 GRAM, TID
     Route: 048
     Dates: start: 20210605, end: 20210618
  42. SODIUM BICARBONATE [Concomitant]
     Active Substance: SODIUM BICARBONATE
     Dosage: 1 GRAM, TID
     Route: 048
     Dates: start: 20210704, end: 20210717
  43. BETAHISTINE MESILATE [Concomitant]
     Active Substance: BETAHISTINE MESILATE
     Indication: Nutritional supplementation
     Dosage: 6 MILLIGRAM
     Route: 048
     Dates: start: 20210603, end: 2021
  44. BETAHISTINE MESILATE [Concomitant]
     Active Substance: BETAHISTINE MESILATE
     Dosage: 6 MILLIGRAM, TID
     Route: 048
     Dates: start: 20210603, end: 20210604
  45. DAN SHEN [Concomitant]
     Indication: Blood disorder
     Dosage: UNK
     Route: 048
     Dates: start: 20210603, end: 2021
  46. DAN SHEN [Concomitant]
     Dosage: UNK, TID
     Route: 048
     Dates: start: 20210605, end: 20210618
  47. ALCOHOL [Concomitant]
     Active Substance: ALCOHOL
     Indication: Prophylaxis
     Dosage: 50 MILLIGRAM, TID
     Route: 048
     Dates: start: 20210623, end: 20210728
  48. FIBROBLAST GROWTH FACTOR 2 (BOVINE) [Concomitant]
     Active Substance: FIBROBLAST GROWTH FACTOR 2 (BOVINE)
     Indication: Prophylaxis
     Dosage: 21000 INTERNATIONAL UNIT
     Dates: start: 20210622, end: 2021
  49. PREDNISOLONE ACETATE [Concomitant]
     Active Substance: PREDNISOLONE ACETATE
     Indication: Plasma cell myeloma
     Dosage: 15 MILLIGRAM
     Route: 058
     Dates: start: 20210623, end: 20210702

REACTIONS (2)
  - Tendon rupture [Recovered/Resolved]
  - Off label use [Unknown]

NARRATIVE: CASE EVENT DATE: 20210703
